FAERS Safety Report 9549694 (Version 1)
Quarter: 2013Q3

REPORT INFORMATION
  Report Type: Spontaneous
  Country: US (occurrence: US)
  Receive Date: 20130924
  Receipt Date: 20130924
  Transmission Date: 20140515
  Serious: Yes (Other)
  Sender: FDA-Public Use
  Company Number: US-BRISTOL-MYERS SQUIBB COMPANY-19367911

PATIENT
  Age: 52 Year
  Sex: Female
  Weight: 59.86 kg

DRUGS (14)
  1. ONGLYZA TABS 5 MG [Suspect]
     Indication: TYPE 1 DIABETES MELLITUS
     Dates: start: 2007
  2. METFORMIN HCL [Suspect]
  3. PLAVIX [Suspect]
  4. CLOPIDOGREL BISULFATE [Suspect]
  5. ISOSORBIDE [Suspect]
  6. DIGOXIN [Suspect]
  7. CARVEDILOL [Suspect]
     Dosage: 1DF: 3.125UNITS NOS
  8. GLIMEPIRIDE [Suspect]
  9. JANUVIA [Concomitant]
  10. CILOSTAZOL [Concomitant]
  11. PANTOPRAZOLE [Concomitant]
  12. TRIAMTERENE [Concomitant]
     Dosage: 1DF: 37.5-25 UNITS NOS
  13. FENOFIBRATE [Concomitant]
  14. PRAVASTATIN SODIUM [Concomitant]

REACTIONS (3)
  - Myocardial infarction [Unknown]
  - Blood pressure decreased [Unknown]
  - Weight decreased [Unknown]
